FAERS Safety Report 24424754 (Version 4)
Quarter: 2024Q4

REPORT INFORMATION
  Report Type: Spontaneous
  Country: CR (occurrence: CR)
  Receive Date: 20241010
  Receipt Date: 20241226
  Transmission Date: 20250114
  Serious: No
  Sender: PFIZER
  Company Number: CR-PFIZER INC-PV202400127639

PATIENT
  Age: 12 Year
  Sex: Female

DRUGS (1)
  1. GENOTROPIN [Suspect]
     Active Substance: SOMATROPIN
     Dosage: 1.8 MG, DAILY

REACTIONS (3)
  - Device issue [Unknown]
  - Device leakage [Unknown]
  - Wrong technique in device usage process [Unknown]
